FAERS Safety Report 11467346 (Version 2)
Quarter: 2015Q4

REPORT INFORMATION
  Report Type: Spontaneous
  Country: DE (occurrence: DE)
  Receive Date: 20150908
  Receipt Date: 20151016
  Transmission Date: 20160304
  Serious: Yes (Hospitalization)
  Sender: FDA-Public Use
  Company Number: DE-ROCHE-1631514

PATIENT
  Age: 15 Year
  Sex: Male

DRUGS (2)
  1. NUTROPIN AQ [Suspect]
     Active Substance: SOMATROPIN
     Route: 065
     Dates: start: 201508, end: 2015
  2. NUTROPIN AQ [Suspect]
     Active Substance: SOMATROPIN
     Indication: GROWTH HORMONE DEFICIENCY
     Dosage: 10 MG / 2 ML
     Route: 065
     Dates: start: 2010, end: 20150614

REACTIONS (1)
  - Hypersomnia-bulimia syndrome [Unknown]

NARRATIVE: CASE EVENT DATE: 20150614
